FAERS Safety Report 16322262 (Version 1)
Quarter: 2019Q2

REPORT INFORMATION
  Report Type: Spontaneous
  Country: US (occurrence: US)
  Receive Date: 20190516
  Receipt Date: 20190516
  Transmission Date: 20190711
  Serious: Yes (Other)
  Sender: FDA-Public Use
  Company Number: US-TARO-2019TAR00254

PATIENT
  Sex: Male

DRUGS (2)
  1. AMIODARONE HCL TABLET 200 MG [Suspect]
     Active Substance: AMIODARONE HYDROCHLORIDE
     Indication: ATRIAL FIBRILLATION
     Dosage: UNK
     Route: 048
     Dates: start: 201404
  2. UNSPECIFIED MEDICATIONS [Suspect]
     Active Substance: UNSPECIFIED INGREDIENT
     Indication: PULMONARY TOXICITY

REACTIONS (17)
  - Contusion [Unknown]
  - Dizziness [Unknown]
  - Nephropathy [Unknown]
  - Neoplasm skin [Unknown]
  - Oedema [Unknown]
  - Off label use [Unknown]
  - Cardiac failure congestive [Unknown]
  - Amnesia [Unknown]
  - Renal impairment [Unknown]
  - Asthenia [Unknown]
  - Haemorrhage [Unknown]
  - Anxiety [Unknown]
  - Skin lesion [Unknown]
  - Hepatic function abnormal [Unknown]
  - Chest pain [Unknown]
  - Unevaluable event [Not Recovered/Not Resolved]
  - Pulmonary toxicity [Not Recovered/Not Resolved]

NARRATIVE: CASE EVENT DATE: 201404
